FAERS Safety Report 19303522 (Version 3)
Quarter: 2022Q2

REPORT INFORMATION
  Report Type: Spontaneous
  Country: US (occurrence: US)
  Receive Date: 20210525
  Receipt Date: 20220512
  Transmission Date: 20220721
  Serious: No
  Sender: FDA-Public Use
  Company Number: US-PFIZER INC-2021205011

PATIENT
  Age: 11 Year
  Sex: Female

DRUGS (2)
  1. GENOTROPIN [Suspect]
     Active Substance: SOMATROPIN
     Indication: Septo-optic dysplasia
     Dosage: 1.9 MG, DAILY (ALTERNATE BETWEEN 1.8 MG AND 2.0 MG EVERY OTHER DAY)
  2. GENOTROPIN [Suspect]
     Active Substance: SOMATROPIN
     Dosage: 1.8 MG, DAILY
     Dates: start: 20210310

REACTIONS (6)
  - Off label use [Unknown]
  - Product prescribing error [Unknown]
  - Device delivery system issue [Unknown]
  - Injection site haemorrhage [Unknown]
  - Device mechanical issue [Unknown]
  - Injection site pain [Unknown]
